FAERS Safety Report 10221713 (Version 1)
Quarter: 2014Q2

REPORT INFORMATION
  Report Type: Spontaneous
  Country: US (occurrence: None)
  Receive Date: 20140606
  Receipt Date: 20140606
  Transmission Date: 20141212
  Serious: Yes (Death, Other)
  Sender: FDA-Public Use
  Company Number: None

PATIENT
  Age: 74 Year
  Sex: Female

DRUGS (10)
  1. LETAIRIS 10MG GILEAD [Suspect]
     Indication: PULMONARY ARTERIAL HYPERTENSION
     Route: 048
     Dates: start: 201307, end: 201405
  2. METOLAZONE [Concomitant]
  3. MORPHINE [Concomitant]
  4. ATENOLOL [Concomitant]
  5. KCL [Concomitant]
  6. FUROSEMIDE [Concomitant]
  7. TRAZODONE [Concomitant]
  8. TIOTROPIUM [Concomitant]
  9. MOMETASONE/FORMOTEROL [Concomitant]
  10. CLONAZEPAM [Concomitant]

REACTIONS (4)
  - Renal failure acute [None]
  - Dyspnoea [None]
  - Aspartate aminotransferase increased [None]
  - Alanine aminotransferase increased [None]
